FAERS Safety Report 10534025 (Version 2)
Quarter: 2014Q4

REPORT INFORMATION
  Report Type: Spontaneous
  Country: CN (occurrence: CN)
  Receive Date: 20141022
  Receipt Date: 20141022
  Transmission Date: 20150529
  Serious: Yes (Hospitalization)
  Sender: FDA-Public Use
  Company Number: PHHY2014CN055240

PATIENT
  Age: 31 Year
  Sex: Male

DRUGS (1)
  1. VOLTAREN [Suspect]
     Active Substance: DICLOFENAC SODIUM
     Indication: GOUT
     Dosage: 75 MG, QD  1 TABLET A DAY
     Route: 048
     Dates: start: 20130101, end: 20140520

REACTIONS (6)
  - Blood creatinine increased [Unknown]
  - Blood uric acid decreased [Unknown]
  - Drug ineffective [Unknown]
  - Urine uric acid increased [Unknown]
  - Hepatic enzyme increased [Unknown]
  - Blood creatine phosphokinase increased [Unknown]

NARRATIVE: CASE EVENT DATE: 20140401
